FAERS Safety Report 5462875-7 (Version None)
Quarter: 2007Q3

REPORT INFORMATION
  Report Type: 
  Country: None (occurrence: None)
  Receive Date: 20070920
  Receipt Date: 20070330
  Transmission Date: 20080115
  Serious: No
  Sender: FDA-Public Use
  Company Number: A0645190A

PATIENT
  Age: 59 Year
  Sex: Male

DRUGS (1)
  1. ABREVA [Suspect]

REACTIONS (7)
  - AURICULAR SWELLING [None]
  - ERYTHEMA [None]
  - HYPERSENSITIVITY [None]
  - LIP SWELLING [None]
  - RASH [None]
  - SKIN LESION [None]
  - SWELLING FACE [None]
